FAERS Safety Report 4956836-1 (Version None)
Quarter: 2006Q1

REPORT INFORMATION
  Report Type: 
  Country: None (occurrence: None)
  Receive Date: 20060323
  Receipt Date: 20060315
  Transmission Date: 20060701
  Serious: Yes (Hospitalization, Other)
  Sender: FDA-Public Use
  Company Number: GR200602003203

PATIENT
  Age: 33 Year
  Sex: Male

DRUGS (1)
  1. OLANZAPINE [Suspect]
     Indication: PSYCHOTIC DISORDER
     Dosage: 20 MG, DAILY (1/D), ORAL
     Route: 048
     Dates: start: 20031201, end: 20040301

REACTIONS (8)
  - BLOOD DISORDER [None]
  - C-REACTIVE PROTEIN INCREASED [None]
  - DIABETIC KETOACIDOSIS [None]
  - HEPATIC STEATOSIS [None]
  - HYPERLIPIDAEMIA [None]
  - LEUKOCYTOSIS [None]
  - PANCREATIC PSEUDOCYST [None]
  - PYREXIA [None]
